FAERS Safety Report 7112258-9 (Version None)
Quarter: 2010Q4

REPORT INFORMATION
  Report Type: 
  Country: None (occurrence: None)
  Receive Date: 20101119
  Receipt Date: 20100430
  Transmission Date: 20110411
  Serious: No
  Sender: FDA-Public Use
  Company Number: A0857502A

PATIENT
  Age: 60 Year
  Sex: Male

DRUGS (1)
  1. AVODART [Suspect]
     Dosage: .5MG PER DAY
     Route: 048
     Dates: end: 20100301

REACTIONS (3)
  - GASTROOESOPHAGEAL REFLUX DISEASE [None]
  - LIBIDO DECREASED [None]
  - SEMEN VOLUME DECREASED [None]
